FAERS Safety Report 15910015 (Version 1)
Quarter: 2019Q1

REPORT INFORMATION
  Report Type: Spontaneous
  Country: JP (occurrence: JP)
  Receive Date: 20190204
  Receipt Date: 20190204
  Transmission Date: 20190417
  Serious: Yes (Hospitalization)
  Sender: FDA-Public Use
  Company Number: JP-ANIPHARMA-2019-JP-000027

PATIENT
  Age: 77 Year
  Sex: Male

DRUGS (13)
  1. CANDESARTAN. [Suspect]
     Active Substance: CANDESARTAN
     Indication: PRODUCT USED FOR UNKNOWN INDICATION
     Dosage: 8 MG QD
     Route: 048
  2. SIGMART [Suspect]
     Active Substance: NICORANDIL
     Dosage: 5 MG BID
     Route: 048
  3. TICLOPIDINE HYDROCHLORIDE. [Suspect]
     Active Substance: TICLOPIDINE HYDROCHLORIDE
     Dosage: 100 MG BID
     Route: 048
  4. ASPIRIN. [Suspect]
     Active Substance: ASPIRIN
     Dosage: 100 MG BID
     Route: 048
  5. LASIX [Suspect]
     Active Substance: FUROSEMIDE
     Dosage: 20 MG QD
     Route: 048
  6. SODIUM CROMOGLICATE [Suspect]
     Active Substance: CROMOLYN SODIUM
     Dosage: 1SPRAY EACH NASAL CABITY
     Route: 045
  7. EURODIN (ESTAZOLAM) [Suspect]
     Active Substance: ESTAZOLAM
     Dosage: 8 MG QD
     Route: 048
  8. AMMONIUM CARB./GLYCYRRHIZA EXTRACT [Suspect]
     Active Substance: AMMONIUM GLYCYRRHIZATE
     Dosage: 40 ML WEEK
     Route: 042
  9. NEXIUM [Suspect]
     Active Substance: ESOMEPRAZOLE MAGNESIUM
     Dosage: 20 MG QD
     Route: 048
  10. AMLODIPINE [Suspect]
     Active Substance: AMLODIPINE BESYLATE
     Dosage: 5 MG QD
     Route: 048
  11. MAINTATE [Suspect]
     Active Substance: BISOPROLOL FUMARATE
     Dosage: 2.5 MG QD
     Route: 048
  12. LIPITOR [Suspect]
     Active Substance: ATORVASTATIN CALCIUM
     Dosage: 5 MG QD
     Route: 048
  13. BELSOMRA [Suspect]
     Active Substance: SUVOREXANT
     Dosage: 15 MG UNK
     Route: 048

REACTIONS (1)
  - Gastric cancer stage 0 [Recovered/Resolved]

NARRATIVE: CASE EVENT DATE: 20181107
